FAERS Safety Report 9199264 (Version 2)
Quarter: 2014Q1

REPORT INFORMATION
  Report Type: Spontaneous
  Country: US (occurrence: US)
  Receive Date: 20130329
  Receipt Date: 20140217
  Transmission Date: 20141002
  Serious: No
  Sender: FDA-Public Use
  Company Number: US-PFIZER INC-2013099651

PATIENT
  Age: 66 Year
  Sex: Female

DRUGS (7)
  1. EFFEXOR [Suspect]
     Dosage: 75 MG, TWICE A DAY
  2. LISINOPRIL [Concomitant]
     Dosage: 10/12.5 MG
  3. FLONASE [Concomitant]
     Dosage: UNK
  4. THEOPHYLLINE [Concomitant]
     Dosage: UNK
  5. VYVANSE [Concomitant]
     Dosage: 40 MG, UNK
  6. LIPITOR [Concomitant]
     Dosage: 40 MG, UNK
  7. TRAMADOL [Concomitant]
     Dosage: 50 MG, UNK

REACTIONS (1)
  - Drug withdrawal syndrome [Unknown]
